FAERS Safety Report 12577817 (Version 1)
Quarter: 2016Q3

REPORT INFORMATION
  Report Type: Spontaneous
  Country: US (occurrence: None)
  Receive Date: 20160720
  Receipt Date: 20160720
  Transmission Date: 20161109
  Serious: Yes (Life-Threatening, Hospitalization)
  Sender: FDA-Public Use
  Company Number: None

PATIENT
  Age: 84 Year
  Sex: Female
  Weight: 55.34 kg

DRUGS (1)
  1. NAPROXEN SODIUM 550MG, 550 MG [Suspect]
     Active Substance: NAPROXEN SODIUM
     Indication: JOINT SWELLING
     Dosage: NAPROXEN SODIUM 550MG?20 TABLET(S)?TWICE A DAY?TAKEN BY MOUTH
     Route: 048
     Dates: start: 20160521, end: 20160527

REACTIONS (3)
  - Gastric ulcer haemorrhage [None]
  - Cardio-respiratory arrest [None]
  - Internal haemorrhage [None]

NARRATIVE: CASE EVENT DATE: 20160601
